FAERS Safety Report 9381816 (Version 2)
Quarter: 2013Q3

REPORT INFORMATION
  Report Type: Report from Study
  Country: AR (occurrence: AR)
  Receive Date: 20130703
  Receipt Date: 20130821
  Transmission Date: 20140515
  Serious: Yes (Hospitalization)
  Sender: FDA-Public Use
  Company Number: PHHY2013AR068619

PATIENT
  Sex: Female

DRUGS (4)
  1. EXFORGE [Suspect]
     Indication: BLOOD PRESSURE ABNORMAL
     Dosage: 1 DF (160/5 MG), DAILY
     Route: 048
  2. EXFORGE [Suspect]
     Indication: ARRHYTHMIA
  3. DIOVAN [Suspect]
     Dosage: 160 MG, UNK
  4. AMLODIPINE [Suspect]
     Dosage: UNK

REACTIONS (6)
  - Clavicle fracture [Recovering/Resolving]
  - Rib fracture [Recovering/Resolving]
  - Accident [Recovering/Resolving]
  - Traumatic lung injury [Recovering/Resolving]
  - Dyspnoea [Recovering/Resolving]
  - Local swelling [Recovered/Resolved]
